FAERS Safety Report 12821526 (Version 12)
Quarter: 2018Q2

REPORT INFORMATION
  Report Type: Report from Study
  Country: FR (occurrence: FR)
  Receive Date: 20161007
  Receipt Date: 20180402
  Transmission Date: 20180711
  Serious: Yes (Death, Hospitalization)
  Sender: FDA-Public Use
  Company Number: FR-ROCHE-1837611

PATIENT
  Age: 77 Year
  Sex: Male
  Weight: 56 kg

DRUGS (64)
  1. ZOPHREN [Concomitant]
     Active Substance: ONDANSETRON
     Indication: VOMITING
  2. NORMACOL [Concomitant]
     Active Substance: HERBALS\KARAYA GUM
     Indication: CONSTIPATION
     Route: 054
     Dates: start: 20160927, end: 20160927
  3. POTASSIUM CHLORIDE. [Concomitant]
     Active Substance: POTASSIUM CHLORIDE
     Indication: HYPOKALAEMIA
     Route: 048
     Dates: start: 20160927, end: 20160927
  4. PRIVIGEN [Concomitant]
     Active Substance: HUMAN IMMUNOGLOBULIN G
     Route: 042
     Dates: start: 20161028, end: 20161028
  5. PHENOXYMETHYLPENICILLIN [Concomitant]
     Active Substance: PENICILLIN V
     Route: 048
     Dates: start: 20161203, end: 20161211
  6. VERAPAMIL [Concomitant]
     Active Substance: VERAPAMIL HYDROCHLORIDE
     Indication: HYPERTENSION
     Route: 048
     Dates: start: 20161203, end: 20161215
  7. HYDROXYDAUNORUBICIN [Concomitant]
     Active Substance: DOXORUBICIN
     Dosage: SECOND CURE
     Route: 065
     Dates: start: 20161028
  8. VINCRISTINE [Concomitant]
     Active Substance: VINCRISTINE
     Dosage: THIRD CURE
     Route: 065
     Dates: start: 20161118
  9. ZYLORIC [Concomitant]
     Active Substance: ALLOPURINOL
     Indication: TUMOUR LYSIS SYNDROME
     Route: 048
     Dates: start: 20160310
  10. OXYCODONE [Concomitant]
     Active Substance: OXYCODONE
     Indication: PAIN
     Route: 048
     Dates: start: 20160913, end: 20160913
  11. PREDNISONE. [Concomitant]
     Active Substance: PREDNISONE
     Route: 048
     Dates: start: 20160915, end: 20160916
  12. PHENOXYMETHYLPENICILLIN [Concomitant]
     Active Substance: PENICILLIN V
     Route: 048
     Dates: start: 20161022, end: 20161104
  13. METHYLPREDNISOLONE. [Concomitant]
     Active Substance: METHYLPREDNISOLONE
     Indication: PAIN
     Route: 042
     Dates: start: 20161215, end: 20161215
  14. VENETOCLAX. [Suspect]
     Active Substance: VENETOCLAX
     Indication: CHRONIC LYMPHOCYTIC LEUKAEMIA
     Dosage: MOST RECENT DOSE (100 MG): 29/JUN/2016
     Route: 048
     Dates: start: 20160411
  15. OBINUTUZUMAB. [Suspect]
     Active Substance: OBINUTUZUMAB
     Indication: CHRONIC LYMPHOCYTIC LEUKAEMIA
     Dosage: MOST RECENT DOSE: 28/JUN/2016 AT 1420
     Route: 042
     Dates: start: 20160316
  16. ISOPTINE [Concomitant]
     Active Substance: VERAPAMIL HYDROCHLORIDE
     Indication: HYPERTENSION
     Route: 048
     Dates: start: 20160909, end: 20161201
  17. CEFTRIAXONE. [Concomitant]
     Active Substance: CEFTRIAXONE
     Indication: INFECTION
     Route: 042
     Dates: start: 20160825, end: 20160902
  18. ZOPHREN [Concomitant]
     Active Substance: ONDANSETRON
     Indication: NAUSEA
     Route: 048
     Dates: start: 20160913, end: 20160913
  19. DROPERIDOL. [Concomitant]
     Active Substance: DROPERIDOL
     Indication: VOMITING
  20. PHENOXYMETHYLPENICILLIN [Concomitant]
     Active Substance: PENICILLIN V
     Route: 048
     Dates: start: 20161202, end: 20161203
  21. FERROUS FUMARATE [Concomitant]
     Active Substance: FERROUS FUMARATE
     Indication: IRON DEFICIENCY
     Route: 048
     Dates: start: 20161205, end: 20161215
  22. ALPRAZOLAM. [Concomitant]
     Active Substance: ALPRAZOLAM
     Indication: ANXIETY
     Route: 048
     Dates: start: 20160907, end: 20160907
  23. PREGABALINE [Concomitant]
     Active Substance: PREGABALIN
     Indication: ANXIETY
     Route: 048
     Dates: start: 20160907, end: 20160908
  24. ALPRAZOLAM. [Concomitant]
     Active Substance: ALPRAZOLAM
     Indication: ANXIETY
     Route: 065
     Dates: start: 20160912, end: 20160913
  25. FUROSEMIDE. [Concomitant]
     Active Substance: FUROSEMIDE
     Route: 042
     Dates: start: 20161211, end: 20161211
  26. PREDNISONE. [Concomitant]
     Active Substance: PREDNISONE
     Route: 048
     Dates: start: 20160914, end: 20160914
  27. VANCOMYCINE [Concomitant]
     Active Substance: VANCOMYCIN
     Indication: INFECTION
     Route: 042
     Dates: start: 20160924, end: 20160927
  28. SUCRALFATE. [Concomitant]
     Active Substance: SUCRALFATE
     Indication: GASTRODUODENAL ULCER
     Dosage: 1 UNIT
     Route: 048
     Dates: start: 20161018, end: 20161104
  29. POTASSIUM CHLORIDE. [Concomitant]
     Active Substance: POTASSIUM CHLORIDE
     Route: 048
     Dates: start: 20161024, end: 20161104
  30. VALACICLOVIR [Concomitant]
     Active Substance: VALACYCLOVIR HYDROCHLORIDE
     Indication: INFECTION
     Route: 048
     Dates: start: 20161018, end: 20161104
  31. PREDNISONE. [Concomitant]
     Active Substance: PREDNISONE
     Dosage: THIRD CURE
     Route: 065
     Dates: start: 20161118
  32. ISOPTINE [Concomitant]
     Active Substance: VERAPAMIL HYDROCHLORIDE
     Indication: OBSTRUCTION GASTRIC
     Route: 048
     Dates: start: 2000, end: 20160901
  33. ESOMEPRAZOLE [Concomitant]
     Active Substance: ESOMEPRAZOLE
     Indication: GASTROOESOPHAGEAL REFLUX DISEASE
     Route: 048
     Dates: start: 20160822, end: 20160922
  34. ORACILLINE [Concomitant]
     Active Substance: PENICILLIN V
     Indication: INFECTION
     Route: 048
     Dates: start: 20160913, end: 20160930
  35. SUCRALFATE. [Concomitant]
     Active Substance: SUCRALFATE
     Route: 048
     Dates: start: 20161202, end: 20161215
  36. PHENOXYMETHYLPENICILLIN [Concomitant]
     Active Substance: PENICILLIN V
     Indication: INFECTION
     Route: 048
     Dates: start: 20161018, end: 20161020
  37. VALACICLOVIR [Concomitant]
     Active Substance: VALACYCLOVIR HYDROCHLORIDE
     Route: 048
     Dates: start: 20161203, end: 20161204
  38. SEDORRHOIDE [Concomitant]
     Indication: HAEMORRHOIDS
     Dosage: 1 UNIT
     Route: 054
     Dates: start: 20161029, end: 20161029
  39. PARACETAMOL [Concomitant]
     Active Substance: ACETAMINOPHEN
     Indication: PAIN
     Route: 048
     Dates: start: 20161202, end: 20161216
  40. CYCLOPHOSPHAMIDE. [Concomitant]
     Active Substance: CYCLOPHOSPHAMIDE
     Dosage: THIRD CURE
     Route: 065
     Dates: start: 20161118
  41. HYDROXYDAUNORUBICIN [Concomitant]
     Active Substance: DOXORUBICIN
     Indication: CHEMOTHERAPY
     Dosage: FIRST CURE
     Route: 065
     Dates: start: 20161007
  42. HYDROXYDAUNORUBICIN [Concomitant]
     Active Substance: DOXORUBICIN
     Dosage: THIRD CURE
     Route: 065
     Dates: start: 20161118
  43. PREDNISONE. [Concomitant]
     Active Substance: PREDNISONE
     Dosage: SECOND CURE
     Route: 065
     Dates: start: 20161028
  44. ESOMEPRAZOLE [Concomitant]
     Active Substance: ESOMEPRAZOLE
     Route: 048
     Dates: start: 20161211, end: 20161214
  45. GAVISCON (ALGINIC ACID) [Concomitant]
     Active Substance: ALGINIC ACID
     Indication: GASTROOESOPHAGEAL REFLUX DISEASE
     Dosage: 1 UNIT
     Route: 048
     Dates: start: 20160822, end: 20160922
  46. DROPERIDOL. [Concomitant]
     Active Substance: DROPERIDOL
     Indication: NAUSEA
     Route: 042
     Dates: start: 20160908, end: 20160912
  47. SUCRALFATE. [Concomitant]
     Active Substance: SUCRALFATE
     Indication: ULCER
     Route: 048
     Dates: start: 20160924, end: 20160930
  48. PRIVIGEN [Concomitant]
     Active Substance: HUMAN IMMUNOGLOBULIN G
     Indication: INFECTION
     Route: 042
     Dates: start: 20161007, end: 20161007
  49. CYCLOPHOSPHAMIDE. [Concomitant]
     Active Substance: CYCLOPHOSPHAMIDE
     Dosage: SECOND CURE
     Route: 065
     Dates: start: 20161028
  50. VINCRISTINE [Concomitant]
     Active Substance: VINCRISTINE
     Dosage: SECOND CURE
     Route: 065
     Dates: start: 20161028
  51. ZELITREX [Concomitant]
     Active Substance: VALACYCLOVIR HYDROCHLORIDE
     Indication: INFECTION
     Route: 048
     Dates: start: 20160318
  52. ZELITREX [Concomitant]
     Active Substance: VALACYCLOVIR HYDROCHLORIDE
     Route: 048
     Dates: start: 20161018, end: 20161111
  53. SIMVASTATINE [Concomitant]
     Active Substance: SIMVASTATIN
     Indication: HYPERCHOLESTEROLAEMIA
     Route: 048
     Dates: start: 2015
  54. ESOMEPRAZOLE [Concomitant]
     Active Substance: ESOMEPRAZOLE
     Route: 042
     Dates: start: 20161022, end: 20161103
  55. ESOMEPRAZOLE [Concomitant]
     Active Substance: ESOMEPRAZOLE
     Route: 048
     Dates: start: 20161202, end: 20161209
  56. OXAZEPAM. [Concomitant]
     Active Substance: OXAZEPAM
     Indication: ANXIETY
     Route: 048
     Dates: start: 20160913, end: 20161005
  57. SULFATE DE GENTAMICINE [Concomitant]
     Indication: INFECTION
     Route: 042
     Dates: start: 20161211, end: 20161211
  58. HEPARINE CALCIQUE [Concomitant]
     Active Substance: HEPARIN CALCIUM
     Dosage: 1 UNIT
     Route: 058
     Dates: start: 20161212, end: 20161212
  59. PREDNISONE. [Concomitant]
     Active Substance: PREDNISONE
     Indication: CHEMOTHERAPY
     Dosage: FIRST CURE
     Route: 065
     Dates: start: 20161007
  60. FUROSEMIDE. [Concomitant]
     Active Substance: FUROSEMIDE
     Indication: HYPERTENSION
     Route: 048
     Dates: start: 20160913, end: 20160927
  61. BISOPROLOL [Concomitant]
     Active Substance: BISOPROLOL
     Indication: HYPERTENSION
     Route: 048
     Dates: start: 20160915, end: 20160930
  62. TINZAPARINE SODIQUE [Concomitant]
     Indication: THROMBOSIS
     Route: 058
     Dates: start: 20161025, end: 20161103
  63. CYCLOPHOSPHAMIDE. [Concomitant]
     Active Substance: CYCLOPHOSPHAMIDE
     Indication: CHEMOTHERAPY
     Dosage: FIRST CURE
     Route: 065
     Dates: start: 20161007
  64. VINCRISTINE [Concomitant]
     Active Substance: VINCRISTINE
     Indication: CHEMOTHERAPY
     Dosage: FIRST CURE
     Route: 065
     Dates: start: 20161007

REACTIONS (7)
  - T-cell lymphoma [Not Recovered/Not Resolved]
  - Splenomegaly [Recovered/Resolved]
  - Septic shock [Recovered/Resolved]
  - Wound evisceration [Recovered/Resolved]
  - Sepsis [Fatal]
  - Pancytopenia [Not Recovered/Not Resolved]
  - Pyrexia [Recovered/Resolved]

NARRATIVE: CASE EVENT DATE: 20160723
